FAERS Safety Report 9719660 (Version 4)
Quarter: 2014Q4

REPORT INFORMATION
  Report Type: Report from Study
  Country: FR (occurrence: FR)
  Receive Date: 20131128
  Receipt Date: 20141007
  Transmission Date: 20150529
  Serious: Yes (Other)
  Sender: FDA-Public Use
  Company Number: FR-ROCHE-1310538

PATIENT
  Age: 11 Year
  Sex: Male
  Weight: 32.8 kg

DRUGS (5)
  1. SOMATROPIN [Suspect]
     Active Substance: SOMATROPIN
     Indication: GROWTH HORMONE DEFICIENCY
     Dosage: 7 IN 7 DAYS (10 MG / 2 ML)
     Route: 058
     Dates: start: 20080219, end: 20110222
  2. SOMATROPIN [Suspect]
     Active Substance: SOMATROPIN
     Route: 058
     Dates: start: 20131016
  3. SOMATROPIN [Suspect]
     Active Substance: SOMATROPIN
     Route: 058
     Dates: start: 20121010, end: 20130409
  4. SOMATROPIN [Suspect]
     Active Substance: SOMATROPIN
     Route: 058
     Dates: start: 20130410, end: 20131015
  5. SOMATROPIN [Suspect]
     Active Substance: SOMATROPIN
     Route: 058
     Dates: start: 20110222, end: 20121009

REACTIONS (1)
  - Cholesteatoma [Recovered/Resolved]

NARRATIVE: CASE EVENT DATE: 201312
